FAERS Safety Report 14147654 (Version 5)
Quarter: 2019Q3

REPORT INFORMATION
  Report Type: Report from Study
  Country: US (occurrence: US)
  Receive Date: 20171031
  Receipt Date: 20190917
  Transmission Date: 20191004
  Serious: Yes (Hospitalization, Other)
  Sender: FDA-Public Use
  Company Number: US-ACTELION-A-NJ2017-161547

PATIENT
  Age: 49 Year
  Sex: Female

DRUGS (1)
  1. OPSUMIT [Suspect]
     Active Substance: MACITENTAN
     Indication: PULMONARY HYPERTENSION
     Dosage: 10 MG, QD
     Route: 048
     Dates: start: 20170807

REACTIONS (7)
  - Malaise [Unknown]
  - Drug ineffective [Not Recovered/Not Resolved]
  - Blood glucose increased [Recovered/Resolved]
  - Bacterial infection [Unknown]
  - Dyspnoea [Not Recovered/Not Resolved]
  - Dialysis [Unknown]
  - Fistula [Unknown]

NARRATIVE: CASE EVENT DATE: 20171012
